FAERS Safety Report 20846670 (Version 1)
Quarter: 2022Q2

REPORT INFORMATION
  Report Type: Spontaneous
  Country: ES (occurrence: ES)
  Receive Date: 20220519
  Receipt Date: 20220519
  Transmission Date: 20220720
  Serious: Yes (Other)
  Sender: FDA-Public Use
  Company Number: ES-KRKA-ES2022K01896LIT

PATIENT
  Age: 58 Year
  Sex: Male

DRUGS (10)
  1. DUTASTERIDE [Suspect]
     Active Substance: DUTASTERIDE
     Indication: Androgenetic alopecia
     Dosage: 0.5 MILLIGRAM, ONCE A DAY
     Route: 048
  2. DUTASTERIDE [Suspect]
     Active Substance: DUTASTERIDE
     Dosage: 10-ML VIAL OF DUTASTERIDE 0.05%
     Route: 023
  3. DUTASTERIDE [Suspect]
     Active Substance: DUTASTERIDE
     Indication: Androgenetic alopecia
     Dosage: THE COMMERCIAL PREPARATION INVOLVED A 10ML VIAL OF 0.05% DUTASTERIDE, ADMIXED WITH ALCOHOL 4ML AN...
     Route: 023
  4. ALCOHOL [Suspect]
     Active Substance: ALCOHOL
     Indication: Vehicle solution use
     Dosage: 4 MILLILITER
     Route: 023
  5. ALCOHOL [Suspect]
     Active Substance: ALCOHOL
     Dosage: THE COMMERCIAL PREPARATION INVOLVED A 10ML VIAL OF 0.05% DUTASTERIDE, ADMIXED WITH ALCOHOL 4ML AN...
     Route: 023
  6. MEPIVACAINE [Concomitant]
     Active Substance: MEPIVACAINE HYDROCHLORIDE
     Indication: Vehicle solution use
     Dosage: 2 %
     Route: 023
  7. MEPIVACAINE [Concomitant]
     Active Substance: MEPIVACAINE HYDROCHLORIDE
     Dosage: THE COMMERCIAL PREPARATION INVOLVED A 10ML VIAL OF 0.05% DUTASTERIDE, ADMIXED WITH ALCOHOL 4ML AN...
     Route: 023
  8. PROPYLENE GLYCOL [Concomitant]
     Active Substance: PROPYLENE GLYCOL
     Indication: Vehicle solution use
     Dosage: 6 MILLILITER (5.995 ML)
     Route: 023
  9. PROPYLENE GLYCOL [Concomitant]
     Active Substance: PROPYLENE GLYCOL
     Dosage: THE COMMERCIAL PREPARATION INVOLVED A 10ML VIAL OF 0.05% DUTASTERIDE, ADMIXED WITH ALCOHOL 4ML AN...
     Route: 023
  10. MINOXIDIL [Concomitant]
     Active Substance: MINOXIDIL
     Indication: Androgenetic alopecia
     Dosage: 2.5 MILLIGRAM, ONCE A DAY (2.5 MG, 1X PER DAY)
     Route: 048

REACTIONS (4)
  - Injection site alopecia [Not Recovered/Not Resolved]
  - Paradoxical drug reaction [Not Recovered/Not Resolved]
  - Off label use [Not Recovered/Not Resolved]
  - Alopecia [Not Recovered/Not Resolved]
